FAERS Safety Report 15736989 (Version 1)
Quarter: 2018Q4

REPORT INFORMATION
  Report Type: Spontaneous
  Country: US (occurrence: US)
  Receive Date: 20181204
  Receipt Date: 20181204
  Transmission Date: 20190205
  Serious: Yes (Other)
  Sender: FDA-Public Use
  Company Number: None

PATIENT
  Age: 73 Year
  Sex: Female
  Weight: 59.85 kg

DRUGS (20)
  1. VITAMIN D3 5000 [Concomitant]
  2. COLLAGEN [Concomitant]
     Active Substance: COLLAGEN
  3. DIOVAN [Concomitant]
     Active Substance: VALSARTAN
  4. IBRANCE [Concomitant]
     Active Substance: PALBOCICLIB
  5. COENZYME Q10 [Concomitant]
     Active Substance: UBIDECARENONE
  6. VITAMIN KK [Concomitant]
  7. ZINC. [Concomitant]
     Active Substance: ZINC
  8. HUPERZINE A [Concomitant]
     Active Substance: HUPERZINE A
  9. EXCHEVIA,DENOSUMAB [Suspect]
     Active Substance: DENOSUMAB
     Indication: BONE DISORDER
     Dosage: ?          QUANTITY:1 INJECTION(S);OTHER FREQUENCY:ONCE EVERY 28 DAYS;?
     Route: 030
     Dates: start: 20171001, end: 20180201
  10. GABAPENTIN. [Concomitant]
     Active Substance: GABAPENTIN
  11. IPRATROPIUM BROMIDE NASAL SPRAY [Concomitant]
     Active Substance: IPRATROPIUM BROMIDE
  12. RENAGEN DTX [Concomitant]
  13. PYRIDOSTIGMINE BROMIDE. [Concomitant]
     Active Substance: PYRIDOSTIGMINE BROMIDE
  14. FASLODEX [Concomitant]
     Active Substance: FULVESTRANT
  15. GLUCOSAMINE + CHONDROTIN [Concomitant]
  16. PROBIOTICS [Concomitant]
     Active Substance: PROBIOTICS NOS
  17. VITAMIN B COMPLEX [Concomitant]
     Active Substance: CYANOCOBALAMIN\DEXPANTHENOL\NIACINAMIDE\PYRIDOXINE HYDROCHLORIDE\RIBOFLAVIN 5^-PHOSPHATE SODIUM\THIAMINE HYDROCHLORIDE\VITAMIN B COMPLEX
  18. TURMERIC [Concomitant]
     Active Substance: HERBALS\TURMERIC
  19. BACTRIUM [Concomitant]
  20. ALIGN [Concomitant]
     Active Substance: BIFIDOBACTERIUM LONGUM SUBSP. INFANTIS

REACTIONS (1)
  - Osteonecrosis of jaw [None]

NARRATIVE: CASE EVENT DATE: 20180301
